FAERS Safety Report 13774887 (Version 1)
Quarter: 2017Q3

REPORT INFORMATION
  Report Type: Spontaneous
  Country: US (occurrence: US)
  Receive Date: 20170720
  Receipt Date: 20170720
  Transmission Date: 20171127
  Serious: No
  Sender: FDA-Public Use
  Company Number: None

PATIENT
  Age: 23 Year
  Sex: Male
  Weight: 81 kg

DRUGS (1)
  1. SUBOXONE [Suspect]
     Active Substance: BUPRENORPHINE HYDROCHLORIDE\NALOXONE HYDROCHLORIDE
     Indication: DRUG USE DISORDER
     Route: 060
     Dates: start: 20170223, end: 20170330

REACTIONS (5)
  - Rash erythematous [None]
  - Pruritus [None]
  - Rash pruritic [None]
  - Papule [None]
  - Pharyngeal disorder [None]

NARRATIVE: CASE EVENT DATE: 20170223
